FAERS Safety Report 5519117-3 (Version None)
Quarter: 2007Q4

REPORT INFORMATION
  Report Type: 
  Country: None (occurrence: None)
  Receive Date: 20071114
  Receipt Date: 20071029
  Transmission Date: 20080405
  Serious: Yes (Hospitalization)
  Sender: FDA-Public Use
  Company Number: 340010M07FRA

PATIENT
  Age: 30 Year
  Sex: Female

DRUGS (1)
  1. OVIDREL [Suspect]
     Dates: start: 20071028, end: 20071028

REACTIONS (2)
  - ABDOMINAL PAIN [None]
  - EFFUSION [None]
